FAERS Safety Report 8575209-6 (Version None)
Quarter: 2012Q3

REPORT INFORMATION
  Report Type: 
  Country: None (occurrence: None)
  Receive Date: 20120807
  Receipt Date: 20120727
  Transmission Date: 20120928
  Serious: Yes (Hospitalization)
  Sender: FDA-Public Use
  Company Number: US-BAYER-2012-014664

PATIENT
  Age: 21 Year
  Sex: Female
  Weight: 45 kg

DRUGS (12)
  1. YAZ [Suspect]
     Indication: MENSTRUATION IRREGULAR
     Dosage: UNK
     Dates: start: 20030101, end: 20050101
  2. ANTIBIOTICS [Concomitant]
  3. CEPHALEXIN [Concomitant]
     Dosage: 500 MG, UNK
     Route: 048
     Dates: start: 20050320
  4. DEPO-PROVERA [Concomitant]
     Dosage: UNK
     Dates: start: 20040101
  5. DEPO-PROVERA [Concomitant]
     Dosage: UNK
     Dates: start: 20050101
  6. CYCLOBENZAPRINE [Concomitant]
     Dosage: 100 MG, UNK
     Route: 048
     Dates: start: 20050112
  7. PROPOXYPHENE NAPSYLATE W/ ACETAMINOPHEN [Concomitant]
     Dosage: 100/650
     Route: 048
     Dates: start: 20050112
  8. YASMIN [Suspect]
     Indication: METRORRHAGIA
  9. YASMIN [Suspect]
     Indication: MENSTRUATION IRREGULAR
     Dosage: UNK
     Dates: start: 20030101, end: 20050101
  10. LEVAQUIN [Concomitant]
  11. DEPO-PROVERA [Concomitant]
     Dosage: UNK
     Dates: start: 20030101
  12. TYLENOL [Concomitant]

REACTIONS (2)
  - PAIN [None]
  - DEEP VEIN THROMBOSIS [None]
